FAERS Safety Report 7439047-X (Version None)
Quarter: 2011Q2

REPORT INFORMATION
  Report Type: 
  Country: None (occurrence: None)
  Receive Date: 20110427
  Receipt Date: 20110419
  Transmission Date: 20111010
  Serious: Yes (Hospitalization)
  Sender: FDA-Public Use
  Company Number: US-BIOGENIDEC-2011BI014889

PATIENT
  Age: 57 Year
  Sex: Female

DRUGS (2)
  1. AVONEX [Suspect]
     Indication: MULTIPLE SCLEROSIS
     Route: 030
     Dates: start: 20061224, end: 20080525
  2. AVONEX [Suspect]
     Route: 030
     Dates: start: 20080904

REACTIONS (3)
  - CARDIAC ARREST [None]
  - OVERDOSE [None]
  - HEADACHE [None]
